FAERS Safety Report 18768658 (Version 2)
Quarter: 2021Q1

REPORT INFORMATION
  Report Type: Report from Study
  Country: CA (occurrence: CA)
  Receive Date: 20210121
  Receipt Date: 20210209
  Transmission Date: 20210419
  Serious: Yes (Other)
  Sender: FDA-Public Use
  Company Number: CA-SA-2021SA016478

PATIENT
  Age: 65 Year
  Sex: Female

DRUGS (1)
  1. ISATUXIMAB [Suspect]
     Active Substance: ISATUXIMAB
     Indication: PLASMA CELL MYELOMA REFRACTORY
     Dosage: 900 MG
     Route: 042
     Dates: start: 20210114, end: 20210114

REACTIONS (9)
  - Eye pruritus [Recovered/Resolved]
  - Back pain [Recovered/Resolved]
  - Cytokine release syndrome [Recovered/Resolved]
  - Flank pain [Recovered/Resolved]
  - Chest pain [Recovered/Resolved]
  - Chest discomfort [Recovered/Resolved]
  - Throat irritation [Recovered/Resolved]
  - Therapy interrupted [Unknown]
  - Dyspnoea [Recovered/Resolved]

NARRATIVE: CASE EVENT DATE: 20210114
